FAERS Safety Report 8883227 (Version 1)
Quarter: 2012Q4

REPORT INFORMATION
  Report Type: Report from Study
  Country: US (occurrence: US)
  Receive Date: 20121102
  Receipt Date: 20121102
  Transmission Date: 20130627
  Serious: Yes (Hospitalization)
  Sender: FDA-Public Use
  Company Number: US-JNJFOC-20120909110

PATIENT
  Age: 6 Year
  Sex: Female
  Weight: 18.6 kg

DRUGS (6)
  1. INFLIXIMAB, RECOMBINANT [Suspect]
     Indication: COLITIS ULCERATIVE
     Route: 042
  2. INFLIXIMAB, RECOMBINANT [Suspect]
     Indication: COLITIS ULCERATIVE
     Route: 042
     Dates: start: 20120221
  3. PREDNISONE [Concomitant]
  4. AZATHIOPRINE [Concomitant]
     Indication: COLITIS ULCERATIVE
     Dates: start: 20110830
  5. 6-MERCAPTOPURINE [Concomitant]
     Indication: COLITIS ULCERATIVE
     Dates: start: 20091124, end: 201201
  6. 6-MERCAPTOPURINE [Concomitant]
     Indication: COLITIS ULCERATIVE
     Dates: start: 20091005

REACTIONS (1)
  - Colitis ulcerative [Recovered/Resolved]
